FAERS Safety Report 16906516 (Version 1)
Quarter: 2019Q4

REPORT INFORMATION
  Report Type: Spontaneous
  Country: IN (occurrence: IN)
  Receive Date: 20191011
  Receipt Date: 20191011
  Transmission Date: 20200122
  Serious: No
  Sender: FDA-Public Use
  Company Number: IN-LUPIN LIMITED-2019-04168

PATIENT
  Age: 11 Month
  Sex: Female

DRUGS (1)
  1. CEFF SUSP PREMIX (CEPHALEXIN) [Suspect]
     Active Substance: CEPHALEXIN
     Indication: PYREXIA
     Dosage: 05 MILLILITER, BID
     Route: 048
     Dates: start: 20190630

REACTIONS (1)
  - Vomiting [Recovered/Resolved]

NARRATIVE: CASE EVENT DATE: 20190630
